FAERS Safety Report 5490592-6 (Version None)
Quarter: 2007Q4

REPORT INFORMATION
  Report Type: 
  Country: None (occurrence: None)
  Receive Date: 20071019
  Receipt Date: 20071011
  Transmission Date: 20080405
  Serious: Yes (Other)
  Sender: FDA-Public Use
  Company Number: FR-ASTRAZENECA-2007CG01471

PATIENT
  Age: 66 Year
  Sex: Female

DRUGS (2)
  1. INEXIUM [Suspect]
     Route: 048
     Dates: end: 20071010
  2. PRAVASTATIN [Concomitant]
     Indication: HYPERCHOLESTEROLAEMIA

REACTIONS (1)
  - NEUROPATHY PERIPHERAL [None]
